FAERS Safety Report 16368576 (Version 3)
Quarter: 2019Q2

REPORT INFORMATION
  Report Type: Spontaneous
  Country: US (occurrence: US)
  Receive Date: 20190529
  Receipt Date: 20190626
  Transmission Date: 20190711
  Serious: Yes (Other)
  Sender: FDA-Public Use
  Company Number: US-ACTELION-A-NJ2019-190251

PATIENT
  Sex: Female

DRUGS (3)
  1. NIFEDIPINE. [Concomitant]
     Active Substance: NIFEDIPINE
  2. UPTRAVI [Suspect]
     Active Substance: SELEXIPAG
     Dosage: 800 MCG, BID
     Route: 048
  3. UPTRAVI [Suspect]
     Active Substance: SELEXIPAG
     Indication: PULMONARY HYPERTENSION
     Dosage: UNK
     Route: 048

REACTIONS (12)
  - Fall [Unknown]
  - Venous haemorrhage [Unknown]
  - Diarrhoea [Unknown]
  - Inflammation [Unknown]
  - Toe amputation [Unknown]
  - Peripheral swelling [Unknown]
  - Rib fracture [Unknown]
  - Tremor [Unknown]
  - Pain [Unknown]
  - Lymphadenectomy [Unknown]
  - Dizziness [Unknown]
  - Vein disorder [Unknown]
